FAERS Safety Report 22046869 (Version 1)
Quarter: 2023Q1

REPORT INFORMATION
  Report Type: Spontaneous
  Country: US (occurrence: US)
  Receive Date: 20230228
  Receipt Date: 20230228
  Transmission Date: 20230417
  Serious: Yes (Life-Threatening, Hospitalization)
  Sender: FDA-Public Use
  Company Number: US-STRIDES ARCOLAB LIMITED-2023SP002988

PATIENT
  Age: 11 Year
  Sex: Male

DRUGS (18)
  1. DOXAZOSIN MESYLATE [Interacting]
     Active Substance: DOXAZOSIN MESYLATE
     Indication: Phaeochromocytoma
     Dosage: 1 MILLIGRAM/DAY
     Route: 065
  2. DOXAZOSIN MESYLATE [Interacting]
     Active Substance: DOXAZOSIN MESYLATE
     Dosage: 2 MILLIGRAM, BID
     Route: 065
  3. ATENOLOL [Suspect]
     Active Substance: ATENOLOL
     Indication: Hypertension
     Dosage: UNK
     Route: 065
  4. EPINEPHRINE [Interacting]
     Active Substance: EPINEPHRINE
     Indication: Vasoplegia syndrome
     Dosage: 5 MICROGRAM,BOLUS
     Route: 065
  5. SODIUM NITROPRUSSIDE [Concomitant]
     Active Substance: SODIUM NITROPRUSSIDE
     Indication: Hypertension
     Dosage: UNK
     Route: 065
  6. MIDAZOLAM [Concomitant]
     Active Substance: MIDAZOLAM
     Indication: Premedication
     Dosage: 2 MILLIGRAM
     Route: 042
  7. LIDOCAINE [Concomitant]
     Active Substance: LIDOCAINE
     Indication: Local anaesthesia
     Dosage: 40 MILLIGRAM
     Route: 065
  8. LIDOCAINE [Concomitant]
     Active Substance: LIDOCAINE
     Dosage: 120 MILLIGRAM
     Route: 065
  9. FENTANYL [Concomitant]
     Active Substance: FENTANYL
     Indication: General anaesthesia
     Dosage: 200 MICROGRAM
     Route: 065
  10. PROPOFOL [Concomitant]
     Active Substance: PROPOFOL
     Indication: General anaesthesia
     Dosage: 300 MILLIGRAM
     Route: 042
  11. ROCURONIUM [Concomitant]
     Active Substance: ROCURONIUM BROMIDE
     Indication: Neuromuscular blockade
     Dosage: 50 MILLIGRAM
     Route: 042
  12. ROCURONIUM [Concomitant]
     Active Substance: ROCURONIUM BROMIDE
     Dosage: UNK
     Route: 065
  13. HYDROMORPHONE [Concomitant]
     Active Substance: HYDROMORPHONE
     Indication: Analgesic therapy
     Dosage: 0.4 MILLIGRAM
     Route: 065
  14. SEVOFLURANE [Concomitant]
     Active Substance: SEVOFLURANE
     Indication: General anaesthesia
     Dosage: UNK
     Route: 045
  15. DEXMEDETOMIDINE [Concomitant]
     Active Substance: DEXMEDETOMIDINE
     Indication: Neuromuscular blockade
     Dosage: UNK,INFUSION
     Route: 065
  16. VASOPRESSIN [Concomitant]
     Active Substance: VASOPRESSIN
     Indication: Vasoplegia syndrome
     Dosage: 4.4 U,BOLUS; 4.4U OVER 10MIN
     Route: 065
  17. VASOPRESSIN [Concomitant]
     Active Substance: VASOPRESSIN
     Dosage: UNK,INFUSION; ESCALATING VASOPRESSIN INFUSION FROM 300-1000 U/KG/MIN
     Route: 065
  18. ANGIOTENSIN II [Concomitant]
     Active Substance: ANGIOTENSIN II
     Indication: Vasoplegia syndrome
     Dosage: UNK,PER MINUTE,INFUSION; DOSE OF ANGIOTENSIN II WAS INCREASED FROM 10-80 NG/KG/MIN OVER THE FIRST 11
     Route: 065

REACTIONS (3)
  - Drug interaction [Unknown]
  - Drug ineffective [Unknown]
  - Off label use [Unknown]
